FAERS Safety Report 9919720 (Version 1)
Quarter: 2014Q1

REPORT INFORMATION
  Report Type: Spontaneous
  Country: US (occurrence: US)
  Receive Date: 20140224
  Receipt Date: 20140224
  Transmission Date: 20141002
  Serious: Yes (Other)
  Sender: FDA-Public Use
  Company Number: US-RB-063132-14

PATIENT
  Age: 67 Year
  Sex: Female

DRUGS (1)
  1. MUCINEX SINUS MAX PRESSURE AND PAIN [Suspect]
     Indication: PRODUCT USED FOR UNKNOWN INDICATION
     Dosage: 2 CAPLETS EVERY 6 HOURS; LAST TOOK ON 14-FEB-2014
     Route: 048
     Dates: start: 20140210

REACTIONS (1)
  - Blood pressure increased [Not Recovered/Not Resolved]
